FAERS Safety Report 18986486 (Version 1)
Quarter: 2021Q1

REPORT INFORMATION
  Report Type: Spontaneous
  Country: US (occurrence: US)
  Receive Date: 20210308
  Receipt Date: 20210308
  Transmission Date: 20210420
  Serious: Yes (Life-Threatening, Hospitalization)
  Sender: FDA-Public Use
  Company Number: None

PATIENT
  Age: 61 Year
  Sex: Male
  Weight: 89.36 kg

DRUGS (2)
  1. DICLOFENAC (DICLOFENAC NA 75MG TAB,EC) [Suspect]
     Active Substance: DICLOFENAC SODIUM
     Indication: PAIN
     Route: 048
     Dates: start: 20160129, end: 20200930
  2. NAPROXEN (NAPROXEN NA 220 MG TAB) [Suspect]
     Active Substance: NAPROXEN SODIUM
     Indication: PAIN
     Route: 048
     Dates: end: 20200930

REACTIONS (3)
  - Gastric haemorrhage [None]
  - Duodenal ulcer [None]
  - Anaemia [None]

NARRATIVE: CASE EVENT DATE: 20200930
